FAERS Safety Report 22244849 (Version 1)
Quarter: 2023Q2

REPORT INFORMATION
  Report Type: Spontaneous
  Country: US (occurrence: US)
  Receive Date: 20230424
  Receipt Date: 20230424
  Transmission Date: 20230721
  Serious: Yes (Other)
  Sender: FDA-Public Use
  Company Number: US-SA-SAC20230421001217

PATIENT
  Sex: Male
  Weight: 90.703 kg

DRUGS (1)
  1. DUPIXENT [Suspect]
     Active Substance: DUPILUMAB
     Indication: Chronic rhinosinusitis with nasal polyps
     Dosage: 300 MG, QOW
     Route: 058
     Dates: start: 20210302

REACTIONS (4)
  - Intestinal obstruction [Recovered/Resolved]
  - Pain [Recovering/Resolving]
  - Infection parasitic [Unknown]
  - Gallbladder disorder [Unknown]
